FAERS Safety Report 6974922-1 (Version None)
Quarter: 2010Q3

REPORT INFORMATION
  Report Type: 
  Country: None (occurrence: None)
  Receive Date: 20100909
  Receipt Date: 20081222
  Transmission Date: 20110219
  Serious: No
  Sender: FDA-Public Use
  Company Number: US-WYE-H07384008

PATIENT
  Sex: Female
  Weight: 59.93 kg

DRUGS (5)
  1. PRISTIQ [Suspect]
     Indication: DEPRESSION
     Route: 048
     Dates: start: 20081107
  2. DOCUSATE SODIUM [Concomitant]
  3. METOCLOPRAMIDE [Concomitant]
  4. NEXIUM [Concomitant]
  5. PRILOSEC [Concomitant]

REACTIONS (5)
  - BRUXISM [None]
  - DISCOMFORT [None]
  - MUSCLE SPASMS [None]
  - MUSCLE TWITCHING [None]
  - TONGUE BITING [None]
